FAERS Safety Report 9472786 (Version 1)
Quarter: 2013Q3

REPORT INFORMATION
  Report Type: Spontaneous
  Country: US (occurrence: US)
  Receive Date: 20130823
  Receipt Date: 20130823
  Transmission Date: 20140515
  Serious: No
  Sender: FDA-Public Use
  Company Number: US-PFIZER INC-2013242403

PATIENT
  Age: 5 Year
  Sex: Male

DRUGS (1)
  1. ADVIL [Suspect]
     Dosage: ^FIVE OF THE ADULT ADVIL^, UNK

REACTIONS (3)
  - Drug administered to patient of inappropriate age [Unknown]
  - Overdose [Unknown]
  - Crying [Unknown]
